FAERS Safety Report 15995455 (Version 1)
Quarter: 2019Q1

REPORT INFORMATION
  Report Type: Spontaneous
  Country: US (occurrence: US)
  Receive Date: 20190129
  Receipt Date: 20190129
  Transmission Date: 20190418
  Serious: No
  Sender: FDA-Public Use
  Company Number: None

PATIENT
  Age: 41 Year
  Sex: Male
  Weight: 70 kg

DRUGS (3)
  1. IFOSFAMIDE. [Suspect]
     Active Substance: IFOSFAMIDE
     Dates: end: 20181015
  2. PACLITAXEL. [Suspect]
     Active Substance: PACLITAXEL
     Dates: end: 20181013
  3. G-CF (FILGRASTIM, AMGEN ) (6124629) [Suspect]
     Active Substance: FILGRASTIM
     Dates: end: 20181023

REACTIONS (3)
  - Deep vein thrombosis [None]
  - Pneumonitis [None]
  - Pulmonary embolism [None]

NARRATIVE: CASE EVENT DATE: 20181024
